FAERS Safety Report 24009849 (Version 1)
Quarter: 2024Q2

REPORT INFORMATION
  Report Type: Spontaneous
  Country: CO (occurrence: CO)
  Receive Date: 20240625
  Receipt Date: 20240625
  Transmission Date: 20240716
  Serious: Yes (Other)
  Sender: FDA-Public Use
  Company Number: CO-009507513-2406COL007060

PATIENT
  Age: 29 Year
  Sex: Female

DRUGS (3)
  1. PEMBROLIZUMAB [Suspect]
     Active Substance: PEMBROLIZUMAB
     Indication: Triple negative breast cancer
     Dosage: UNK
     Dates: start: 20220606, end: 20221129
  2. PEMBROLIZUMAB [Suspect]
     Active Substance: PEMBROLIZUMAB
     Dosage: UNK, FOR 9 CYCLES
     Dates: start: 2023, end: 20230711
  3. CAPECITABINE [Suspect]
     Active Substance: CAPECITABINE
     Indication: Triple negative breast cancer
     Dosage: UNK, FOR 8 CYCLES
     Dates: start: 2023, end: 20230623

REACTIONS (6)
  - Dermatomyositis [Recovering/Resolving]
  - Radiotherapy [Recovered/Resolved]
  - Mastectomy [Unknown]
  - Food allergy [Not Recovered/Not Resolved]
  - Blood thyroid stimulating hormone increased [Unknown]
  - Product use in unapproved indication [Unknown]

NARRATIVE: CASE EVENT DATE: 20231201
